FAERS Safety Report 7205015-6 (Version None)
Quarter: 2010Q4

REPORT INFORMATION
  Report Type: 
  Country: None (occurrence: None)
  Receive Date: 20101230
  Receipt Date: 20101222
  Transmission Date: 20110411
  Serious: Yes (Hospitalization)
  Sender: FDA-Public Use
  Company Number: AU-AMGEN LTD.-QUU429687

PATIENT

DRUGS (8)
  1. NEULASTA [Suspect]
     Indication: CHEMOTHERAPY
     Dosage: UNK UNK, UNK
     Route: 065
  2. FLUOROURACIL [Concomitant]
  3. EPIRUBICIN [Concomitant]
  4. CYCLOPHOSPHAMIDE [Concomitant]
  5. SODIUM CHLORIDE [Concomitant]
     Dosage: .9 %, UNK
  6. ONDANSETRON [Concomitant]
     Dosage: UNK UNK, UNK
     Route: 042
  7. METOCLOPRAMIDE HYDROCHLORIDE [Concomitant]
  8. DOCETAXEL [Concomitant]

REACTIONS (4)
  - ANAPHYLACTIC SHOCK [None]
  - CHEST PAIN [None]
  - NAUSEA [None]
  - RASH ERYTHEMATOUS [None]
